FAERS Safety Report 6471108-4 (Version None)
Quarter: 2009Q4

REPORT INFORMATION
  Report Type: 
  Country: None (occurrence: None)
  Receive Date: 20091203
  Receipt Date: 20091123
  Transmission Date: 20100525
  Serious: Yes (Other)
  Sender: FDA-Public Use
  Company Number: PHHY2009MX19910

PATIENT
  Age: 59 Year
  Sex: Female

DRUGS (5)
  1. DIOVAN [Suspect]
     Indication: HYPERTENSION
     Dosage: 1 DF (160 MG) PER DAY
     Route: 048
     Dates: start: 20060201
  2. DIOVAN [Suspect]
     Dosage: 80 MG, 1 TABLET PER DAY
     Route: 048
  3. EUTIROX [Concomitant]
     Indication: THYROID DISORDER
     Dosage: 2 TABLET PER DAY
     Route: 048
  4. AMOXIL [Concomitant]
  5. OXYGEN [Concomitant]
     Dosage: UNK
     Dates: start: 20090101

REACTIONS (7)
  - BLOOD PRESSURE DECREASED [None]
  - BREAST CANCER [None]
  - CHILLS [None]
  - HEADACHE [None]
  - HEPATITIS C [None]
  - NAUSEA [None]
  - PLATELET COUNT DECREASED [None]
